FAERS Safety Report 24810208 (Version 1)
Quarter: 2025Q1

REPORT INFORMATION
  Report Type: Spontaneous
  Country: US (occurrence: US)
  Receive Date: 20250106
  Receipt Date: 20250106
  Transmission Date: 20250409
  Serious: Yes (Hospitalization)
  Sender: MYLAN
  Company Number: US-MYLANLABS-2025M1000258

PATIENT
  Age: 39 Year
  Sex: Male

DRUGS (8)
  1. LEUCOVORIN [Suspect]
     Active Substance: LEUCOVORIN\LEUCOVORIN CALCIUM
     Indication: Colon cancer metastatic
     Route: 065
  2. OXALIPLATIN [Suspect]
     Active Substance: OXALIPLATIN
     Indication: Colon cancer metastatic
     Route: 065
  3. NIVOLUMAB [Suspect]
     Active Substance: NIVOLUMAB
     Indication: Colon cancer metastatic
     Route: 065
  4. FLUOROURACIL [Suspect]
     Active Substance: FLUOROURACIL
     Indication: Colon cancer metastatic
     Route: 065
  5. ETANERCEPT [Concomitant]
     Active Substance: ETANERCEPT
     Indication: Stevens-Johnson syndrome
     Route: 065
  6. ETANERCEPT [Concomitant]
     Active Substance: ETANERCEPT
     Indication: Toxic epidermal necrolysis
  7. Immunoglobulin [Concomitant]
     Indication: Stevens-Johnson syndrome
     Route: 065
  8. Immunoglobulin [Concomitant]
     Indication: Toxic epidermal necrolysis

REACTIONS (3)
  - Oesophageal candidiasis [Unknown]
  - Herpes simplex oesophagitis [Unknown]
  - Drug ineffective [Unknown]
